FAERS Safety Report 6473817-X (Version None)
Quarter: 2009Q4

REPORT INFORMATION
  Report Type: 
  Country: None (occurrence: None)
  Receive Date: 20091204
  Receipt Date: 20091125
  Transmission Date: 20100525
  Serious: Yes (Disabling)
  Sender: FDA-Public Use
  Company Number: US-ROCHE-667086

PATIENT
  Sex: Male
  Weight: 129.3 kg

DRUGS (6)
  1. PEGASYS [Suspect]
     Indication: HEPATITIS C
     Dosage: PRE-FILLED SYRINGE
     Route: 058
     Dates: start: 20090123
  2. RIBAPAK [Suspect]
     Indication: HEPATITIS C
     Dosage: TAKEN IN DIVIDED DOSES
     Route: 048
     Dates: start: 20090123
  3. LACTULOSE [Concomitant]
     Indication: HEPATIC CIRRHOSIS
     Dosage: DOSE: 1-2 TBS, FREQUENCY: EVERY DAY
     Route: 048
  4. ZOLOFT [Concomitant]
     Indication: DEPRESSION
     Route: 048
  5. OMEPRAZOLE [Concomitant]
     Route: 048
  6. AMBIEN [Concomitant]
     Indication: INSOMNIA
     Route: 048

REACTIONS (6)
  - FEELING ABNORMAL [None]
  - HEADACHE [None]
  - HYPERVENTILATION [None]
  - PAIN [None]
  - PANIC ATTACK [None]
  - STRESS [None]
